FAERS Safety Report 6541988-2 (Version None)
Quarter: 2010Q1

REPORT INFORMATION
  Report Type: 
  Country: None (occurrence: None)
  Receive Date: 20100119
  Receipt Date: 20100111
  Transmission Date: 20100710
  Serious: Yes (Other)
  Sender: FDA-Public Use
  Company Number: US-ABBOTT-10P-163-0618757-00

PATIENT
  Sex: Female
  Weight: 138.47 kg

DRUGS (3)
  1. ZEMPLAR [Suspect]
     Indication: RENAL IMPAIRMENT
     Dosage: UNKNOWN
  2. FUROSEMIDE [Concomitant]
     Indication: DRUG USE FOR UNKNOWN INDICATION
     Dosage: 80 MG DAILY
  3. DARVOCET [Concomitant]
     Indication: PAIN

REACTIONS (2)
  - CELLULITIS [None]
  - FUNGAL SKIN INFECTION [None]
